FAERS Safety Report 9013381 (Version 7)
Quarter: 2017Q1

REPORT INFORMATION
  Report Type: Spontaneous
  Country: US (occurrence: US)
  Receive Date: 20130114
  Receipt Date: 20170328
  Transmission Date: 20170429
  Serious: Yes (Hospitalization, Other)
  Sender: FDA-Public Use
  Company Number: US-009507513-1301USA004606

PATIENT
  Sex: Female
  Weight: 60.77 kg

DRUGS (8)
  1. ALENDRONATE SODIUM. [Suspect]
     Active Substance: ALENDRONATE SODIUM
     Indication: OSTEOPOROSIS
     Dosage: 70 MG, QW
     Route: 048
     Dates: start: 20090515, end: 20100412
  2. SYNTHROID [Concomitant]
     Active Substance: LEVOTHYROXINE SODIUM
     Indication: HYPOTHYROIDISM
     Dosage: UNK
     Dates: start: 2000
  3. HYDROCHLOROT [Concomitant]
     Active Substance: HYDROCHLOROTHIAZIDE
     Indication: HYPERTENSION
     Dosage: UNK
     Dates: start: 2010
  4. FOSAMAX [Suspect]
     Active Substance: ALENDRONATE SODIUM
     Indication: OSTEOPOROSIS
     Dosage: 70 MG, QW
     Route: 048
     Dates: start: 20010620, end: 20101225
  5. CORTICOSTEROIDS (UNSPECIFIED) [Concomitant]
     Active Substance: UNSPECIFIED INGREDIENT
     Indication: ASTHMA
     Dosage: UNK
     Dates: start: 201008, end: 201101
  6. ALENDRONATE SODIUM. [Suspect]
     Active Substance: ALENDRONATE SODIUM
     Indication: PRODUCT USED FOR UNKNOWN INDICATION
     Dosage: 70 MG, UNKNOWN
     Route: 048
     Dates: start: 20100717, end: 20101008
  7. VITAMINS (UNSPECIFIED) [Concomitant]
     Active Substance: VITAMINS
     Indication: VITAMIN SUPPLEMENTATION
     Dosage: UNK
     Dates: start: 1954
  8. SIMVASTATIN. [Concomitant]
     Active Substance: SIMVASTATIN
     Indication: BLOOD CHOLESTEROL INCREASED
     Dosage: UNK
     Dates: start: 2010

REACTIONS (30)
  - Depression [Unknown]
  - Vascular calcification [Unknown]
  - Low turnover osteopathy [Unknown]
  - Gastrooesophageal reflux disease [Unknown]
  - Ileus [Recovered/Resolved]
  - Spinal osteoarthritis [Unknown]
  - Scoliosis [Unknown]
  - Neuropathy peripheral [Unknown]
  - Osteopenia [Unknown]
  - Musculoskeletal pain [Unknown]
  - Anxiety [Unknown]
  - Spinal column stenosis [Unknown]
  - Oedema peripheral [Unknown]
  - Intramedullary rod insertion [Unknown]
  - Post-traumatic stress disorder [Unknown]
  - Coronary artery disease [Unknown]
  - Polymyalgia rheumatica [Unknown]
  - Pain in extremity [Unknown]
  - Back pain [Unknown]
  - Pain in extremity [Unknown]
  - Femur fracture [Not Recovered/Not Resolved]
  - Femur fracture [Unknown]
  - Intramedullary rod insertion [Unknown]
  - Osteoarthritis [Unknown]
  - Gastric dilatation [Recovered/Resolved]
  - Cushingoid [Unknown]
  - Muscular weakness [Unknown]
  - Head injury [Unknown]
  - Spondylolisthesis [Unknown]
  - Pain in extremity [Unknown]

NARRATIVE: CASE EVENT DATE: 201007
